FAERS Safety Report 18680726 (Version 1)
Quarter: 2020Q4

REPORT INFORMATION
  Report Type: Report from Study
  Country: US (occurrence: US)
  Receive Date: 20201229
  Receipt Date: 20201229
  Transmission Date: 20210114
  Serious: No
  Sender: FDA-Public Use
  Company Number: US-CLOVIS ONCOLOGY-CLO-2020-002052

PATIENT
  Sex: Female

DRUGS (1)
  1. RUBRACA [Suspect]
     Active Substance: RUCAPARIB CAMSYLATE
     Indication: UTERINE CANCER
     Dosage: 600 MG, BID
     Route: 048
     Dates: start: 20201027

REACTIONS (6)
  - Heart rate increased [Unknown]
  - Periorbital swelling [Unknown]
  - Diarrhoea [Recovering/Resolving]
  - Product use in unapproved indication [Unknown]
  - Pruritus [Unknown]
  - Balance disorder [Unknown]

NARRATIVE: CASE EVENT DATE: 2020
